FAERS Safety Report 4582218-0 (Version None)
Quarter: 2005Q2

REPORT INFORMATION
  Report Type: 
  Country: None (occurrence: None)
  Receive Date: 20050210
  Receipt Date: 20050210
  Transmission Date: 20051028
  Serious: Yes (Hospitalization)
  Sender: FDA-Public Use
  Company Number: None

PATIENT
  Sex: Male
  Weight: 126.1 kg

DRUGS (6)
  1. GLIADEL [Suspect]
     Indication: GLIOBLASTOMA MULTIFORME
     Dosage: 7.7 MG PER WAFER - MAX OF 8
  2. O6-BENZYLGUANINE (O6BG) [Suspect]
     Indication: GLIOBLASTOMA MULTIFORME
     Dosage: 60MG/M2 INFUSION X 5 DAYS
  3. DEPAKOTE [Concomitant]
  4. KEPPRA [Concomitant]
  5. DECADRON [Concomitant]
  6. ZANTAC [Concomitant]

REACTIONS (7)
  - CSF CULTURE POSITIVE [None]
  - DISEASE RECURRENCE [None]
  - INJURY [None]
  - MIGRATION OF IMPLANT [None]
  - PSEUDOMENINGOCELE [None]
  - PULMONARY EMBOLISM [None]
  - STAPHYLOCOCCAL INFECTION [None]
